FAERS Safety Report 4399036-9 (Version None)
Quarter: 2004Q3

REPORT INFORMATION
  Report Type: 
  Country: None (occurrence: None)
  Receive Date: 20040712
  Receipt Date: 20040622
  Transmission Date: 20050211
  Serious: Yes (Hospitalization, Other)
  Sender: FDA-Public Use
  Company Number: USA040568065

PATIENT
  Age: 62 Year
  Sex: Female

DRUGS (16)
  1. FORTEO [Suspect]
     Indication: OSTEOPOROSIS
     Dosage: 20 UG/1 DAY
     Dates: start: 20040301
  2. KLOR-CON [Concomitant]
  3. TEGRETOL [Concomitant]
  4. SYNTHROID [Concomitant]
  5. PLAQUENIL [Concomitant]
  6. GABITRIL [Concomitant]
  7. ALLEGRA [Concomitant]
  8. TRAZODONE HCL [Concomitant]
  9. MOBIC [Concomitant]
  10. SINGULAIR [Concomitant]
  11. ENDOCET [Concomitant]
  12. CLONZAPEM [Concomitant]
  13. ADVAIR DISKUS 100/50 [Concomitant]
  14. ZADITOR (KETOTIFEN) [Concomitant]
  15. EFFEXOR [Concomitant]
  16. ALBUTEROL [Concomitant]

REACTIONS (5)
  - ARTHRALGIA [None]
  - DRUG INEFFECTIVE [None]
  - GROIN PAIN [None]
  - PAIN IN EXTREMITY [None]
  - POST PROCEDURAL COMPLICATION [None]
